FAERS Safety Report 7434011-9 (Version None)
Quarter: 2011Q2

REPORT INFORMATION
  Report Type: 
  Country: None (occurrence: None)
  Receive Date: 20110425
  Receipt Date: 20090121
  Transmission Date: 20111010
  Serious: Yes (Death, Hospitalization, Other)
  Sender: FDA-Public Use
  Company Number: US-BAYER-200912310NA

PATIENT
  Age: 68 Year
  Sex: Male
  Weight: 74.376 kg

DRUGS (20)
  1. MOTRIN [Concomitant]
  2. LIPITOR [Concomitant]
     Dosage: 10 MG, QD
     Route: 048
  3. HEPARIN [Concomitant]
     Dosage: UNK
     Dates: start: 20071029
  4. RED BLOOD CELLS [Concomitant]
     Dosage: 12 U, UNK
     Dates: start: 20071029
  5. TRASYLOL [Suspect]
     Indication: COX-MAZE PROCEDURE
  6. LISINOPRIL [Concomitant]
     Dosage: 10 MG, QD
     Route: 048
  7. LEVOPHED [Concomitant]
     Dosage: UNK
     Dates: start: 20071029
  8. PROTAMINE SULFATE [Concomitant]
     Dosage: UNK
     Dates: start: 20071029
  9. FRESH FROZEN PLASMA [Concomitant]
     Dosage: 4 U, UNK
     Dates: start: 20071029
  10. TRASYLOL [Suspect]
     Indication: STERNOTOMY
     Dosage: TEST DOSE WITH 200 CC PUMP PRIME
     Route: 042
     Dates: start: 20071029, end: 20071029
  11. EPINEPHRINE [Concomitant]
     Dosage: UNK
     Dates: start: 20071029
  12. NAPROXEN (ALEVE) [Concomitant]
  13. TIKOSYN [Concomitant]
     Dosage: 250 MCG BID
     Route: 048
  14. TRASYLOL [Suspect]
     Indication: INTRA-AORTIC BALLOON PLACEMENT
  15. COUMADIN [Concomitant]
     Dosage: 12.5 3 DAYS A WEEK
  16. LANOXIN [Concomitant]
     Dosage: 0.125 MG, QD
     Route: 048
  17. INSULIN [Concomitant]
     Dosage: UNK
     Dates: start: 20071029
  18. TRASYLOL [Suspect]
     Indication: CORONARY ARTERY BYPASS
  19. TRASYLOL [Suspect]
     Indication: MITRAL VALVE REPLACEMENT
  20. COUMADIN [Concomitant]
     Dosage: 10 MG 4 DAYS A WEEK
     Route: 048

REACTIONS (13)
  - RENAL FAILURE [None]
  - PAIN [None]
  - DEATH [None]
  - MULTI-ORGAN FAILURE [None]
  - EMOTIONAL DISTRESS [None]
  - STRESS [None]
  - RENAL INJURY [None]
  - ANHEDONIA [None]
  - ANXIETY [None]
  - FEAR [None]
  - INJURY [None]
  - RENAL IMPAIRMENT [None]
  - UNEVALUABLE EVENT [None]
